FAERS Safety Report 8947560 (Version 1)
Quarter: 2012Q4

REPORT INFORMATION
  Report Type: 
  Country: US (occurrence: US)
  Receive Date: 20121204
  Receipt Date: 20121204
  Transmission Date: 20130627
  Serious: Yes (Hospitalization)
  Sender: FDA-Public Use
  Company Number: US-ELI_LILLY_AND_COMPANY-US201211009516

PATIENT
  Age: 75 Year
  Sex: Male

DRUGS (4)
  1. EFFIENT [Suspect]
     Indication: STENT PLACEMENT
     Dosage: 5 mg, unknown
     Route: 048
     Dates: start: 201205, end: 201210
  2. ASPIRIN [Concomitant]
  3. PRAVACHOL [Concomitant]
  4. COREG [Concomitant]

REACTIONS (1)
  - Neutropenia [Recovering/Resolving]
